FAERS Safety Report 11242822 (Version 2)
Quarter: 2015Q3

REPORT INFORMATION
  Report Type: Spontaneous
  Country: ES (occurrence: ES)
  Receive Date: 20150707
  Receipt Date: 20150716
  Transmission Date: 20151125
  Serious: Yes (Death, Other)
  Sender: FDA-Public Use
  Company Number: ES-GLAXOSMITHKLINE-ES2015GSK096165

PATIENT
  Age: 71 Year
  Sex: Female

DRUGS (7)
  1. DIAFUSOR [Concomitant]
     Active Substance: NITROGLYCERIN
  2. ANORO ELLIPTA [Suspect]
     Active Substance: UMECLIDINIUM BROMIDE\VILANTEROL TRIFENATATE
     Indication: CHRONIC OBSTRUCTIVE PULMONARY DISEASE
     Dosage: UNK
     Route: 055
     Dates: start: 201504
  3. ADIRO [Concomitant]
     Active Substance: ASPIRIN
     Route: 048
  4. LOSARTAN. [Concomitant]
     Active Substance: LOSARTAN
  5. SEGURIL [Concomitant]
     Active Substance: FUROSEMIDE
     Route: 048
  6. AMLODIPINE [Concomitant]
     Active Substance: AMLODIPINE BESYLATE
  7. FERRO SANOL [Concomitant]
     Active Substance: FERROUS SULFATE\GLYCINE

REACTIONS (2)
  - Sudden death [Fatal]
  - Chronic obstructive pulmonary disease [Unknown]

NARRATIVE: CASE EVENT DATE: 201506
